FAERS Safety Report 7338996-0 (Version None)
Quarter: 2011Q1

REPORT INFORMATION
  Report Type: 
  Country: None (occurrence: None)
  Receive Date: 20110308
  Receipt Date: 20110209
  Transmission Date: 20110831
  Serious: No
  Sender: FDA-Public Use
  Company Number: US-B.I. PHARMACEUTICALS,INC./RIDGEFIELD-2011-BP-05326BP

PATIENT
  Sex: Male

DRUGS (6)
  1. PRADAXA [Suspect]
     Indication: ATRIAL FIBRILLATION
     Dosage: 300 MG
     Route: 048
     Dates: start: 20110204, end: 20110208
  2. LISINOPRIL [Concomitant]
     Indication: HYPERTENSION
  3. JANUVIA [Concomitant]
     Indication: DIABETES MELLITUS
  4. LANCID [Concomitant]
     Indication: DIABETES MELLITUS
  5. GLIPIZIDE [Concomitant]
     Indication: MUSCLE SPASMS
  6. ACTOS [Concomitant]
     Indication: DIABETES MELLITUS

REACTIONS (4)
  - SKIN EXFOLIATION [None]
  - FLATULENCE [None]
  - RECTAL HAEMORRHAGE [None]
  - DIARRHOEA [None]
